FAERS Safety Report 7268953-4 (Version None)
Quarter: 2011Q1

REPORT INFORMATION
  Report Type: 
  Country: None (occurrence: None)
  Receive Date: 20110201
  Receipt Date: 20110131
  Transmission Date: 20110831
  Serious: Yes (Other)
  Sender: FDA-Public Use
  Company Number: US-ABBOTT-10P-163-0693485-00

PATIENT
  Sex: Female
  Weight: 71.732 kg

DRUGS (19)
  1. GABAPENTIN [Concomitant]
     Indication: NERVE INJURY
  2. FUROSEMIDE [Concomitant]
     Indication: SWELLING
  3. BACLOFEN [Concomitant]
     Indication: MYOSITIS
  4. HUMIRA [Suspect]
     Indication: RHEUMATOID ARTHRITIS
     Dates: start: 20100702, end: 20101020
  5. BACLOFEN [Concomitant]
     Indication: PAIN
  6. LEVOTHYROXINE SODIUM [Concomitant]
     Indication: HYPOTHYROIDISM
  7. SIMVASTATIN [Concomitant]
     Indication: BLOOD CHOLESTEROL INCREASED
  8. FOLIC ACID [Concomitant]
     Indication: VITAMIN SUPPLEMENTATION
  9. MAGNESIUM [Concomitant]
     Indication: MINERAL SUPPLEMENTATION
  10. PILOCARPINE [Concomitant]
     Indication: DRY MOUTH
  11. ENBREL [Concomitant]
     Indication: RHEUMATOID ARTHRITIS
     Dates: start: 20101020
  12. DILAUDID [Concomitant]
     Indication: BACK INJURY
     Dates: start: 20000101
  13. KLOR-CON [Concomitant]
     Indication: MINERAL SUPPLEMENTATION
  14. SERTRALINE HYDROCHLORIDE [Concomitant]
     Indication: DEPRESSION
  15. ADVAIR [Concomitant]
     Indication: ASTHMA
  16. HYDROCODEINE [Concomitant]
     Indication: PAIN
  17. SPIRONOLACTONE [Concomitant]
     Indication: SWELLING
  18. FOSAMAX [Concomitant]
     Indication: OSTEOPOROSIS
     Dates: start: 20060101
  19. PROVENTIL [Concomitant]
     Indication: ASTHMA

REACTIONS (3)
  - DRUG INEFFECTIVE [None]
  - RHEUMATOID ARTHRITIS [None]
  - MULTIPLE SCLEROSIS [None]
